FAERS Safety Report 5463065-4 (Version None)
Quarter: 2007Q3

REPORT INFORMATION
  Report Type: 
  Country: None (occurrence: None)
  Receive Date: 20070918
  Receipt Date: 20070918
  Transmission Date: 20080115
  Serious: Yes (Hospitalization)
  Sender: FDA-Public Use
  Company Number: None

PATIENT
  Age: 68 Year
  Sex: Male
  Weight: 101 kg

DRUGS (10)
  1. BEVACIZUMAB (GENENTECH) [Suspect]
     Indication: GLIOBLASTOMA MULTIFORME
     Dosage: 10 MG/KG
  2. ERLOTINIB (GENENTECH) [Suspect]
     Indication: GLIOBLASTOMA MULTIFORME
     Dosage: 200 MG/DAY
  3. KEPPRA [Concomitant]
  4. ZOFRAN [Concomitant]
  5. LEXAPRO [Concomitant]
  6. LOVENOX [Concomitant]
  7. DECADRON [Concomitant]
  8. PRILOSEC [Concomitant]
  9. PROTONIX [Concomitant]
  10. CEFTIN [Concomitant]

REACTIONS (2)
  - EPISTAXIS [None]
  - HEADACHE [None]
